FAERS Safety Report 9879440 (Version 3)
Quarter: 2014Q2

REPORT INFORMATION
  Report Type: Spontaneous
  Country: US (occurrence: US)
  Receive Date: 20140206
  Receipt Date: 20140618
  Transmission Date: 20141212
  Serious: Yes (Hospitalization)
  Sender: FDA-Public Use
  Company Number: US-FRI-1000053432

PATIENT
  Sex: Female

DRUGS (5)
  1. VIIBRYD [Suspect]
     Indication: MAJOR DEPRESSION
     Dosage: 10MG
     Route: 048
     Dates: start: 20120615, end: 2012
  2. VIIBRYD [Suspect]
     Dosage: 20MG
     Route: 048
     Dates: start: 2012, end: 20120730
  3. VIIBRYD [Suspect]
     Dosage: 40MG
     Route: 048
     Dates: start: 20120731, end: 20131210
  4. VIIBRYD [Suspect]
     Dosage: 20MG
     Route: 048
     Dates: start: 20131211, end: 20140128
  5. VIIBRYD [Suspect]
     Dosage: 30MG
     Route: 048
     Dates: start: 20140129

REACTIONS (1)
  - Foetal death [Unknown]
